FAERS Safety Report 15522098 (Version 1)
Quarter: 2018Q4

REPORT INFORMATION
  Report Type: Spontaneous
  Country: US (occurrence: US)
  Receive Date: 20181018
  Receipt Date: 20181018
  Transmission Date: 20190205
  Serious: Yes (Disabling)
  Sender: FDA-Public Use
  Company Number: None

PATIENT
  Age: 48 Year
  Sex: Male

DRUGS (6)
  1. LISINOPRIL-HCTZ [Concomitant]
     Active Substance: HYDROCHLOROTHIAZIDE\LISINOPRIL
  2. BEXAROTENE 1% GEL [Concomitant]
     Dates: start: 20180509
  3. ZOLINZA [Suspect]
     Active Substance: VORINOSTAT
     Indication: MYCOSIS FUNGOIDES
     Route: 048
     Dates: start: 20180101, end: 20180901
  4. OMEGA 3 FATTY ACID CAPSULES [Concomitant]
     Dates: start: 20100701
  5. ASPIRIN 81MG ENTERIC COATED [Concomitant]
  6. LEVOTHYROXINE 75 MCG [Concomitant]
     Dates: start: 20100701

REACTIONS (1)
  - Tooth loss [None]

NARRATIVE: CASE EVENT DATE: 20180501
